FAERS Safety Report 23304121 (Version 1)
Quarter: 2023Q4

REPORT INFORMATION
  Report Type: Spontaneous
  Country: US (occurrence: US)
  Receive Date: 20231218
  Receipt Date: 20231218
  Transmission Date: 20240110
  Serious: Yes (Hospitalization, Other)
  Sender: FDA-Public Use
  Company Number: US-AUROBINDO-AUR-APL-2023-078045

PATIENT
  Age: 60 Year
  Sex: Male

DRUGS (2)
  1. AMANTADINE [Suspect]
     Active Substance: AMANTADINE
     Indication: Hereditary ataxia
     Dosage: UNK
  2. RILUZOLE [Concomitant]
     Active Substance: RILUZOLE
     Indication: Product used for unknown indication
     Dosage: UNK
     Route: 065

REACTIONS (8)
  - Encephalopathy [Unknown]
  - Hypoxia [Unknown]
  - Unresponsive to stimuli [Unknown]
  - Drug withdrawal syndrome [Unknown]
  - Muscle rigidity [Unknown]
  - Pyrexia [Unknown]
  - Tachycardia [Unknown]
  - Tachypnoea [Unknown]
